FAERS Safety Report 7371642-9 (Version None)
Quarter: 2011Q1

REPORT INFORMATION
  Report Type: 
  Country: None (occurrence: None)
  Receive Date: 20110324
  Receipt Date: 20110317
  Transmission Date: 20110831
  Serious: Yes (Other)
  Sender: FDA-Public Use
  Company Number: BR-PFIZER INC-2011059809

PATIENT
  Age: 11 Year
  Sex: Female
  Weight: 36.7 kg

DRUGS (1)
  1. GENOTROPIN [Suspect]
     Dosage: 12 MG
     Route: 058

REACTIONS (2)
  - INCORRECT DOSE ADMINISTERED [None]
  - HALLUCINATION [None]
